FAERS Safety Report 22380026 (Version 2)
Quarter: 2024Q2

REPORT INFORMATION
  Report Type: Spontaneous
  Country: IT (occurrence: IT)
  Receive Date: 20230529
  Receipt Date: 20240530
  Transmission Date: 20240716
  Serious: Yes (Other)
  Sender: FDA-Public Use
  Company Number: None

PATIENT
  Age: 46 Year
  Sex: Male
  Weight: 84 kg

DRUGS (7)
  1. VINCRISTINE [Suspect]
     Active Substance: VINCRISTINE
     Indication: Non-Hodgkin^s lymphoma
     Dosage: DOSAGE TEXT: 0.82 MG/24 H IN CONTINUOUS INFUSION, VINCRISTINA TEVA ITALIA
     Route: 042
     Dates: start: 20230407, end: 20230411
  2. DOXORUBICIN HYDROCHLORIDE [Suspect]
     Active Substance: DOXORUBICIN HYDROCHLORIDE
     Indication: Non-Hodgkin^s lymphoma
     Dosage: DOSAGE TEXT: 35.26 MG/24 H IN CONTINUOUS INFUSION
     Route: 042
     Dates: start: 20230407, end: 20230411
  3. FLUOXETINE [Concomitant]
     Active Substance: FLUOXETINE HYDROCHLORIDE
     Indication: Schizophrenia
     Route: 065
  4. CLOZAPINE [Concomitant]
     Active Substance: CLOZAPINE
     Indication: Schizophrenia
     Route: 065
  5. CYCLOPHOSPHAMIDE [Suspect]
     Active Substance: CYCLOPHOSPHAMIDE
     Indication: Non-Hodgkin^s lymphoma
     Dosage: DOSAGE TEXT: 2641.25 MG/60 MINUTES, ENDOXAN BAXTER
     Route: 042
     Dates: start: 20230411, end: 20230411
  6. ETOPOSIDE [Suspect]
     Active Substance: ETOPOSIDE
     Indication: Non-Hodgkin^s lymphoma
     Dosage: DOSAGE TEXT: 176.08 MG/24 H IN CONTINUOUS INFUSION,
     Route: 042
     Dates: start: 20230407, end: 20230411
  7. RITUXIMAB [Suspect]
     Active Substance: RITUXIMAB
     Indication: Non-Hodgkin^s lymphoma
     Dosage: DOSAGE TEXT: 764.25 MG/360 MINUTES
     Route: 042
     Dates: start: 20230412, end: 20230412

REACTIONS (1)
  - Pancytopenia [Recovered/Resolved]

NARRATIVE: CASE EVENT DATE: 20230419
